FAERS Safety Report 4740678-6 (Version None)
Quarter: 2005Q3

REPORT INFORMATION
  Report Type: 
  Country: None (occurrence: None)
  Receive Date: 20050801
  Receipt Date: 20050630
  Transmission Date: 20060218
  Serious: No
  Sender: FDA-Public Use
  Company Number: 2005PV000221

PATIENT
  Age: 50 Year
  Sex: Male
  Weight: 113.3993 kg

DRUGS (11)
  1. BYETTA [Suspect]
     Indication: DIABETES MELLITUS NON-INSULIN-DEPENDENT
     Dosage: 5 UG; BID; SC
     Route: 058
     Dates: start: 20050624
  2. ECOTRIN [Concomitant]
  3. ATENOLOL [Concomitant]
  4. NIACIN [Concomitant]
  5. PEPCID [Concomitant]
  6. AVANDIA [Concomitant]
  7. ZETIA [Concomitant]
  8. ATACAND HCT [Concomitant]
  9. ADVAIR DISKUS 100/50 [Concomitant]
  10. FLONASE [Concomitant]
  11. GLUCOPHAGE [Concomitant]

REACTIONS (6)
  - DECREASED APPETITE [None]
  - DYSPEPSIA [None]
  - ERUCTATION [None]
  - FEELING JITTERY [None]
  - FLATULENCE [None]
  - NAUSEA [None]
